FAERS Safety Report 19552634 (Version 1)
Quarter: 2021Q3

REPORT INFORMATION
  Report Type: Spontaneous
  Country: US (occurrence: US)
  Receive Date: 20210714
  Receipt Date: 20210714
  Transmission Date: 20211014
  Serious: No
  Sender: FDA-Public Use
  Company Number: US-SA-2021SA223231

PATIENT
  Age: 41 Year
  Sex: Female

DRUGS (1)
  1. SOLIQUA 100/33 [Suspect]
     Active Substance: INSULIN GLARGINE\LIXISENATIDE
     Indication: TYPE 2 DIABETES MELLITUS
     Dosage: QD (ONCE DAILY IN MORNING)
     Route: 065
     Dates: start: 20210701

REACTIONS (4)
  - Abdominal pain upper [Unknown]
  - Nausea [Not Recovered/Not Resolved]
  - Product storage error [Unknown]
  - Vomiting [Unknown]

NARRATIVE: CASE EVENT DATE: 20210701
